FAERS Safety Report 21596443 (Version 3)
Quarter: 2022Q4

REPORT INFORMATION
  Report Type: Spontaneous
  Country: US (occurrence: US)
  Receive Date: 20221115
  Receipt Date: 20221214
  Transmission Date: 20230112
  Serious: Yes (Hospitalization)
  Sender: FDA-Public Use
  Company Number: US-PFIZER INC-PV202200102819

PATIENT
  Age: 40 Year
  Sex: Male

DRUGS (1)
  1. XELJANZ XR [Suspect]
     Active Substance: TOFACITINIB CITRATE
     Dosage: 11 MG, DAILY
     Route: 048
     Dates: start: 20201015

REACTIONS (3)
  - Anaphylactic reaction [Unknown]
  - Hypertension [Unknown]
  - Throat tightness [Unknown]

NARRATIVE: CASE EVENT DATE: 20221113
